FAERS Safety Report 19265411 (Version 5)
Quarter: 2023Q4

REPORT INFORMATION
  Report Type: Other
  Country: CA (occurrence: CA)
  Receive Date: 20210517
  Receipt Date: 20231026
  Transmission Date: 20240110
  Serious: Yes (Hospitalization, Other)
  Sender: FDA-Public Use
  Company Number: CA-ASTELLAS-2021US017319

PATIENT
  Age: 63 Year
  Sex: Male

DRUGS (11)
  1. MICAFUNGIN [Suspect]
     Active Substance: MICAFUNGIN SODIUM
     Indication: Prophylaxis against transplant rejection
     Dosage: UNK UNK, UNKNOWN FREQ.
     Route: 065
     Dates: start: 20200915
  2. AMIODARONE [Suspect]
     Active Substance: AMIODARONE
     Indication: Atrial fibrillation
     Dosage: UNK UNK, UNKNOWN FREQ.
     Route: 065
     Dates: start: 2020
  3. BUSULFAN [Suspect]
     Active Substance: BUSULFAN
     Indication: Surgical preconditioning
     Route: 065
     Dates: start: 20200915, end: 20200921
  4. CYCLOSPORINE [Suspect]
     Active Substance: CYCLOSPORINE
     Indication: Prophylaxis against transplant rejection
     Dosage: UNK UNK, UNKNOWN FREQ.
     Route: 065
     Dates: start: 20200921
  5. FLUDARABINE [Suspect]
     Active Substance: FLUDARABINE PHOSPHATE
     Indication: Surgical preconditioning
     Dosage: UNK UNK, UNKNOWN FREQ.
     Route: 065
     Dates: start: 20200915, end: 20200921
  6. GABAPENTIN [Suspect]
     Active Substance: GABAPENTIN
     Indication: Insomnia
     Dosage: UNK UNK, UNKNOWN FREQ.
     Route: 065
     Dates: start: 2020
  7. PENTAMIDINE [Suspect]
     Active Substance: PENTAMIDINE
     Indication: Prophylaxis against transplant rejection
     Dosage: UNK UNK, UNKNOWN FREQ.
     Route: 065
     Dates: start: 20200915
  8. ROSUVASTATIN CALCIUM [Suspect]
     Active Substance: ROSUVASTATIN CALCIUM
     Indication: Dyslipidaemia
     Dosage: UNK UNK, UNKNOWN FREQ.
     Route: 048
     Dates: start: 2008
  9. TAFAMIDIS MEGLUMINE [Suspect]
     Active Substance: TAFAMIDIS MEGLUMINE
     Indication: Cardiac amyloidosis
     Route: 048
     Dates: start: 20190517
  10. VALTREX [Suspect]
     Active Substance: VALACYCLOVIR HYDROCHLORIDE
     Indication: Prophylaxis against transplant rejection
     Dosage: UNK UNK, UNKNOWN FREQ.
     Route: 065
     Dates: start: 20200921
  11. ZOPICLONE [Suspect]
     Active Substance: ZOPICLONE
     Indication: Insomnia
     Dosage: UNK UNK, UNKNOWN FREQ.
     Route: 065
     Dates: start: 2013

REACTIONS (11)
  - Atrial flutter [Unknown]
  - Cardiac failure [Unknown]
  - Hyperlipidaemia [Unknown]
  - Blood culture positive [Recovering/Resolving]
  - Atrial fibrillation [Unknown]
  - Insomnia [Unknown]
  - Intervertebral disc protrusion [Unknown]
  - Pyrexia [Recovering/Resolving]
  - Sepsis [Recovering/Resolving]
  - Spinal stenosis [Unknown]
  - Product use in unapproved indication [Unknown]
